FAERS Safety Report 17875657 (Version 1)
Quarter: 2020Q2

REPORT INFORMATION
  Report Type: Report from Study
  Country: DE (occurrence: DE)
  Receive Date: 20200609
  Receipt Date: 20200609
  Transmission Date: 20200714
  Serious: Yes (Other)
  Sender: FDA-Public Use
  Company Number: DE-MYLANLABS-2020M1054548

PATIENT
  Age: 31 Year
  Sex: Female

DRUGS (8)
  1. SPIRONOLACTON [Concomitant]
     Active Substance: SPIRONOLACTONE
     Dosage: 1-0-0
  2. EUTHYROX [Concomitant]
     Active Substance: LEVOTHYROXINE SODIUM
     Dosage: 1-0-0
  3. OCREVUS [Suspect]
     Active Substance: OCRELIZUMAB
     Dosage: 300 MILLIGRAM
     Route: 042
     Dates: start: 20180601
  4. FENTANYL. [Suspect]
     Active Substance: FENTANYL
     Indication: MULTIPLE SCLEROSIS RELAPSE
     Dosage: 75 MICROGRAM
     Route: 065
  5. OCREVUS [Suspect]
     Active Substance: OCRELIZUMAB
     Indication: RELAPSING-REMITTING MULTIPLE SCLEROSIS
     Dosage: MAINTENANCE DOSE
     Route: 042
     Dates: start: 20190108
  6. OCREVUS [Suspect]
     Active Substance: OCRELIZUMAB
     Dosage: SECOND INITIAL DOSE
     Route: 042
     Dates: start: 20180615
  7. CARVEDILOL. [Concomitant]
     Active Substance: CARVEDILOL
     Dosage: 1-0-1
  8. ENTRESTO [Concomitant]
     Active Substance: SACUBITRIL\VALSARTAN
     Dosage: 100 MILLIGRAM

REACTIONS (13)
  - Myalgia [Recovered/Resolved]
  - Poor peripheral circulation [Not Recovered/Not Resolved]
  - Pyrexia [Recovered/Resolved]
  - Restlessness [Recovered/Resolved]
  - Multiple sclerosis relapse [Not Recovered/Not Resolved]
  - Pharyngeal swelling [Recovered/Resolved]
  - Nausea [Recovered/Resolved]
  - Muscle tightness [Recovered/Resolved]
  - Nasopharyngitis [Recovering/Resolving]
  - Blood pressure decreased [Not Recovered/Not Resolved]
  - Sleep disorder [Recovered/Resolved]
  - Dizziness [Recovered/Resolved]
  - Decreased appetite [Not Recovered/Not Resolved]

NARRATIVE: CASE EVENT DATE: 20180601
